FAERS Safety Report 6007223-9 (Version None)
Quarter: 2008Q4

REPORT INFORMATION
  Report Type: 
  Country: None (occurrence: None)
  Receive Date: 20081217
  Receipt Date: 20080212
  Transmission Date: 20090506
  Serious: No
  Sender: FDA-Public Use
  Company Number: US-ASTRAZENECA-2008UW02933

PATIENT
  Sex: Female

DRUGS (4)
  1. CRESTOR [Suspect]
     Indication: BLOOD CHOLESTEROL INCREASED
     Route: 048
     Dates: start: 20080211
  2. PHAZYME [Concomitant]
     Indication: FLATULENCE
     Dates: start: 20080212
  3. OVER-THE-COUNTER [Concomitant]
     Indication: FLATULENCE
     Dates: start: 20080212
  4. LISINOPRIL [Concomitant]

REACTIONS (1)
  - DYSPNOEA [None]
